FAERS Safety Report 12442599 (Version 1)
Quarter: 2016Q2

REPORT INFORMATION
  Report Type: Spontaneous
  Country: US (occurrence: None)
  Receive Date: 20160606
  Receipt Date: 20160606
  Transmission Date: 20160815
  Serious: Yes (Other)
  Sender: FDA-Public Use
  Company Number: None

PATIENT
  Age: 63 Year
  Sex: Female
  Weight: 77.11 kg

DRUGS (29)
  1. SYNTHROID [Concomitant]
     Active Substance: LEVOTHYROXINE SODIUM
  2. METFORMIN [Concomitant]
     Active Substance: METFORMIN HYDROCHLORIDE
  3. SOY ISOFLOCONES [Concomitant]
  4. GLUCOSAMINE [Concomitant]
     Active Substance: GLUCOSAMINE
  5. MSM [Concomitant]
     Active Substance: DIMETHYL SULFONE
  6. WELLNESS FORMULA [Concomitant]
  7. TYLENOL WITH CODEINE [Concomitant]
     Active Substance: ACETAMINOPHEN\CODEINE PHOSPHATE
  8. DHEA [Concomitant]
     Active Substance: PRASTERONE
  9. FISH OIL [Concomitant]
     Active Substance: FISH OIL
  10. CHONDROITIN [Concomitant]
     Active Substance: CHONDROITIN
  11. VITAMIN D [Concomitant]
     Active Substance: CHOLECALCIFEROL
  12. CALCIUM [Concomitant]
     Active Substance: CALCIUM
  13. GEMFIBROZIL. [Concomitant]
     Active Substance: GEMFIBROZIL
  14. CARBAMAZEPINE. [Concomitant]
     Active Substance: CARBAMAZEPINE
  15. CRANBERRY. [Concomitant]
     Active Substance: CRANBERRY
  16. VICTOZA [Suspect]
     Active Substance: LIRAGLUTIDE
     Indication: TYPE 2 DIABETES MELLITUS
     Dosage: 0.3 INJECTION(S) IN THE MORNING GIVEN INOT/UNDER THE SKIN
     Dates: start: 20150323, end: 20160413
  17. MVI [Concomitant]
     Active Substance: VITAMINS
  18. SIMVASTATIN. [Concomitant]
     Active Substance: SIMVASTATIN
  19. EPIPEN [Concomitant]
     Active Substance: EPINEPHRINE
  20. VITAMIN C [Concomitant]
     Active Substance: ASCORBIC ACID
  21. COQ10 [Concomitant]
     Active Substance: UBIDECARENONE
  22. RAMIPRIL. [Concomitant]
     Active Substance: RAMIPRIL
  23. NIACIN. [Concomitant]
     Active Substance: NIACIN
  24. MANGOSTEEN [Concomitant]
  25. FLEXERIL [Concomitant]
     Active Substance: CYCLOBENZAPRINE HYDROCHLORIDE
  26. ASA [Concomitant]
     Active Substance: ASPIRIN
  27. ZANTAC [Concomitant]
     Active Substance: RANITIDINE HYDROCHLORIDE
  28. MILK THISTLE [Concomitant]
     Active Substance: MILK THISTLE
  29. ZINC [Concomitant]
     Active Substance: ZINC\ZINC CHLORIDE

REACTIONS (4)
  - Nausea [None]
  - Vomiting [None]
  - Migraine [None]
  - Diarrhoea [None]

NARRATIVE: CASE EVENT DATE: 20160413
